FAERS Safety Report 7518574-0 (Version None)
Quarter: 2011Q3

REPORT INFORMATION
  Report Type: 
  Country: None (occurrence: None)
  Receive Date: 20110601
  Receipt Date: 20110601
  Transmission Date: 20111222
  Serious: Yes (Hospitalization)
  Sender: FDA-Public Use
  Company Number: None

PATIENT
  Age: 53 Year
  Sex: Female
  Weight: 81.6475 kg

DRUGS (1)
  1. FLEXERIL [Suspect]
     Indication: ANALGESIC THERAPY
     Dosage: 1 TABLET EVERY 8 HOURS
     Dates: start: 20110421, end: 20110426

REACTIONS (1)
  - GRAND MAL CONVULSION [None]
